FAERS Safety Report 25121634 (Version 1)
Quarter: 2025Q1

REPORT INFORMATION
  Report Type: Spontaneous
  Country: TR (occurrence: TR)
  Receive Date: 20250326
  Receipt Date: 20250326
  Transmission Date: 20250408
  Serious: Yes (Hospitalization, Other)
  Sender: TEVA
  Company Number: TR-TEVA-VS-3311862

PATIENT
  Age: 68 Year
  Sex: Female

DRUGS (1)
  1. METHOTREXATE [Suspect]
     Active Substance: METHOTREXATE
     Indication: Product used for unknown indication
     Dosage: RECEIVING FROM PAST 6 MONTHS
     Route: 065

REACTIONS (9)
  - Pancytopenia [Unknown]
  - Diarrhoea [Unknown]
  - Mucosal inflammation [Unknown]
  - Leukopenia [Recovered/Resolved]
  - Pyrexia [Unknown]
  - Neutropenia [Recovered/Resolved]
  - Intentional product misuse [Unknown]
  - Incorrect dose administered [Unknown]
  - Melaena [Unknown]
